FAERS Safety Report 26126383 (Version 1)
Quarter: 2025Q4

REPORT INFORMATION
  Report Type: Spontaneous
  Country: CN (occurrence: CN)
  Receive Date: 20251205
  Receipt Date: 20251205
  Transmission Date: 20260118
  Serious: Yes (Other)
  Sender: BAXTER
  Company Number: CN-BAXTER-2025BAX025087

PATIENT
  Age: 81 Year
  Sex: Female
  Weight: 42 kg

DRUGS (5)
  1. CYCLOPHOSPHAMIDE [Suspect]
     Active Substance: CYCLOPHOSPHAMIDE
     Indication: Diffuse large B-cell lymphoma
     Dosage: 0.6 G, QD (0.6 G ON DAY 1)
     Route: 065
     Dates: start: 20230131
  2. MITOXANTRONE [Suspect]
     Active Substance: MITOXANTRONE HYDROCHLORIDE
     Indication: Diffuse large B-cell lymphoma
     Dosage: 10 MG, QD (DAY 1, SIX 21-DAY CYCLES)
     Route: 065
     Dates: start: 20230131
  3. PREDNISONE [Suspect]
     Active Substance: PREDNISONE
     Indication: Diffuse large B-cell lymphoma
     Dosage: 50 MG, QD (50 MG ON DAYS 1-5)
     Route: 065
     Dates: start: 20230131
  4. RITUXIMAB [Suspect]
     Active Substance: RITUXIMAB
     Indication: Diffuse large B-cell lymphoma
     Dosage: 500 MG, QD (500 MG ON DAY 0)
     Route: 065
     Dates: start: 20230131
  5. VINCRISTINE [Suspect]
     Active Substance: VINCRISTINE
     Indication: Diffuse large B-cell lymphoma
     Dosage: UNK
     Route: 065
     Dates: start: 20230131

REACTIONS (6)
  - Peripheral nerve infection [Recovered/Resolved]
  - Tricuspid valve incompetence [Unknown]
  - Myelosuppression [Recovered/Resolved]
  - Anaemia [Recovered/Resolved]
  - Neutrophil count decreased [Recovered/Resolved]
  - Gastrointestinal disorder [Recovered/Resolved]
